FAERS Safety Report 9927743 (Version 2)
Quarter: 2014Q1

REPORT INFORMATION
  Report Type: Spontaneous
  Country: FR (occurrence: FR)
  Receive Date: 20140227
  Receipt Date: 20140331
  Transmission Date: 20141002
  Serious: Yes (Hospitalization, Other)
  Sender: FDA-Public Use
  Company Number: FR-ABBVIE-14P-056-1204716-00

PATIENT
  Age: 47 Year
  Sex: Female

DRUGS (9)
  1. NORVIR [Suspect]
     Indication: HIV INFECTION
  2. REYATAZ [Suspect]
     Indication: HIV INFECTION
  3. TRUVADA [Suspect]
     Indication: HIV INFECTION
  4. BACTRIM [Suspect]
     Indication: ANTIVIRAL PROPHYLAXIS
     Dosage: 1 VIAL
     Dates: start: 20120228
  5. BACTRIM [Suspect]
     Indication: OPPORTUNISTIC INFECTION PROPHYLAXIS
  6. ZECLAR [Suspect]
     Indication: OPPORTUNISTIC INFECTION PROPHYLAXIS
     Dates: start: 20120509
  7. ZECLAR [Suspect]
     Indication: ANTIVIRAL PROPHYLAXIS
  8. ANSATIPINE [Suspect]
     Indication: ANTIVIRAL PROPHYLAXIS
  9. ANSATIPINE [Suspect]
     Indication: OPPORTUNISTIC INFECTION PROPHYLAXIS

REACTIONS (3)
  - Endoscopy small intestine [Unknown]
  - Cytomegalovirus infection [Recovering/Resolving]
  - General physical health deterioration [Unknown]
